FAERS Safety Report 4523079-5 (Version None)
Quarter: 2004Q4

REPORT INFORMATION
  Report Type: 
  Country: None (occurrence: None)
  Receive Date: 20041208
  Receipt Date: 20041129
  Transmission Date: 20050328
  Serious: Yes (Other)
  Sender: FDA-Public Use
  Company Number: 2004-11-1509

PATIENT
  Age: 80 Year
  Sex: Female

DRUGS (2)
  1. CELESTAN DEPOT INJECTABLE SUSPENSION ^LIKE CELESTONE SOLUSPAN^ [Suspect]
     Indication: BACK PAIN
     Dosage: 1 ML QD INTRAMUSCULAR
     Route: 030
  2. CARBOSTESIN INJECTABLE [Suspect]
     Indication: BACK PAIN
     Dosage: 1 ML 0.5% QD INTRACUSCUL

REACTIONS (4)
  - DEPRESSION [None]
  - INTENTION TREMOR [None]
  - NERVE ROOT LESION [None]
  - SENSORIMOTOR DISORDER [None]
